FAERS Safety Report 21080381 (Version 1)
Quarter: 2022Q3

REPORT INFORMATION
  Report Type: Spontaneous
  Country: US (occurrence: US)
  Receive Date: 20220714
  Receipt Date: 20220714
  Transmission Date: 20221027
  Serious: Yes (Disabling)
  Sender: FDA-Public Use
  Company Number: US-SA-SAC20220708000618

PATIENT
  Age: 86 Year
  Sex: Male

DRUGS (1)
  1. AUBAGIO [Suspect]
     Active Substance: TERIFLUNOMIDE
     Indication: Multiple sclerosis
     Dosage: 14 MG QD
     Route: 048
     Dates: start: 20180705

REACTIONS (4)
  - Gait disturbance [Unknown]
  - Condition aggravated [Unknown]
  - Balance disorder [Unknown]
  - Fall [Unknown]
